FAERS Safety Report 7775341-0 (Version None)
Quarter: 2011Q3

REPORT INFORMATION
  Report Type: 
  Country: None (occurrence: None)
  Receive Date: 20110921
  Receipt Date: 20110908
  Transmission Date: 20111222
  Serious: Yes (Other)
  Sender: FDA-Public Use
  Company Number: FK201101883

PATIENT
  Age: 55 Year
  Sex: Female

DRUGS (2)
  1. AMBIT SORENSON PAIN PUMP [Suspect]
     Indication: POSTOPERATIVE ANALGESIA
     Dosage: INTRA-ARTICULAR
     Route: 014
  2. SENSORCAINE [Suspect]
     Indication: POSTOPERATIVE ANALGESIA
     Dosage: 2 ML/HR FOR FORTYEIGHT TO SIXTY HOURS, INTRA-ARTICULAR
     Route: 014

REACTIONS (3)
  - JOINT CREPITATION [None]
  - MUSCULOSKELETAL PAIN [None]
  - CHONDROLYSIS [None]
